FAERS Safety Report 6018202-X (Version None)
Quarter: 2008Q4

REPORT INFORMATION
  Report Type: 
  Country: None (occurrence: None)
  Receive Date: 20081223
  Receipt Date: 20081215
  Transmission Date: 20090506
  Serious: Yes (Disabling)
  Sender: FDA-Public Use
  Company Number: PHEH2008US09838

PATIENT
  Sex: Female
  Weight: 74.83 kg

DRUGS (12)
  1. RECLAST [Suspect]
     Indication: OSTEOPENIA
     Dosage: 5 MG/100ML, ONCE/SINGLE
     Dates: start: 20080916, end: 20080916
  2. ASCORBIC ACID [Concomitant]
     Dosage: 500 MG, QD
     Route: 048
  3. CALCUREN [Concomitant]
     Dosage: 600 MG, BID
  4. DIOVAN [Concomitant]
     Dosage: 80 MG, QD
     Route: 048
  5. FLUTICASONE W/SALMETEROL [Concomitant]
     Dosage: 100-50 MCG
  6. MULTIVIT [Concomitant]
     Dosage: 1 DF, QD
  7. NEXIUM [Concomitant]
     Dosage: 40 MG, BID
     Route: 048
  8. VITAMIN D [Concomitant]
     Dosage: 400 IU, BID
     Route: 048
  9. VYTORIN [Concomitant]
     Dosage: 10MG -80MG, QD
     Route: 048
  10. ZYRTEC [Concomitant]
     Dosage: 10 MG, QD
  11. TEMAZEPAM [Concomitant]
  12. ZOCOR [Concomitant]

REACTIONS (17)
  - ASTHENIA [None]
  - BLOOD CREATINE PHOSPHOKINASE INCREASED [None]
  - BLOOD CREATININE INCREASED [None]
  - BLOOD POTASSIUM INCREASED [None]
  - BLOOD UREA INCREASED [None]
  - DIZZINESS [None]
  - GAIT DISTURBANCE [None]
  - HEART RATE INCREASED [None]
  - HYPOAESTHESIA [None]
  - MYALGIA [None]
  - NEUTROPHIL COUNT INCREASED [None]
  - NIGHT SWEATS [None]
  - PYREXIA [None]
  - RED BLOOD CELL SEDIMENTATION RATE INCREASED [None]
  - RHEUMATOID FACTOR INCREASED [None]
  - VASCULITIS [None]
  - WHITE BLOOD CELL COUNT INCREASED [None]
